FAERS Safety Report 6708588-2 (Version None)
Quarter: 2010Q2

REPORT INFORMATION
  Report Type: 
  Country: None (occurrence: None)
  Receive Date: 20100503
  Receipt Date: 20100422
  Transmission Date: 20101027
  Serious: Yes (Hospitalization, Other)
  Sender: FDA-Public Use
  Company Number: NL-MEDIMMUNE-MEDI-0011138

PATIENT
  Sex: Female
  Weight: 8.25 kg

DRUGS (2)
  1. SYNAGIS [Suspect]
     Route: 030
     Dates: start: 20091008, end: 20091231
  2. SYNAGIS [Suspect]
     Route: 030
     Dates: start: 20100128, end: 20100422

REACTIONS (6)
  - COUGH [None]
  - FLUID INTAKE REDUCED [None]
  - LISTLESS [None]
  - OXYGEN SATURATION DECREASED [None]
  - PYREXIA [None]
  - RESPIRATORY SYNCYTIAL VIRUS INFECTION [None]
